FAERS Safety Report 4446215-8 (Version None)
Quarter: 2004Q3

REPORT INFORMATION
  Report Type: 
  Country: None (occurrence: None)
  Receive Date: 20040903
  Receipt Date: 20040826
  Transmission Date: 20050211
  Serious: Yes (Other)
  Sender: FDA-Public Use
  Company Number: HQWYE642327AUG04

PATIENT
  Age: 19 Year
  Sex: Male

DRUGS (6)
  1. RAPAMUNE [Suspect]
     Indication: IMMUNOSUPPRESSION
     Dosage: 2 MG 1X PER 1 DAY, ORAL
     Route: 048
     Dates: start: 20020326
  2. CYCLOSPORINE [Concomitant]
  3. HYDROCHLORIATHIZID (HYDROCHLOROTHIAZIDE) [Concomitant]
  4. AMLODIPINE [Concomitant]
  5. RANITIDINE [Concomitant]
  6. LIPITOR [Concomitant]

REACTIONS (5)
  - BLOOD CREATININE INCREASED [None]
  - CONDITION AGGRAVATED [None]
  - DISEASE RECURRENCE [None]
  - GLOMERULONEPHRITIS FOCAL [None]
  - PROTEINURIA [None]
